FAERS Safety Report 12691295 (Version 2)
Quarter: 2016Q4

REPORT INFORMATION
  Report Type: Spontaneous
  Country: US (occurrence: US)
  Receive Date: 20160826
  Receipt Date: 20161116
  Transmission Date: 20170207
  Serious: Yes (Other)
  Sender: FDA-Public Use
  Company Number: US-VIRTUS PHARMACEUTICALS, LLC-2016VTS00054

PATIENT
  Age: 66 Year
  Sex: Female
  Weight: 68.27 kg

DRUGS (2)
  1. DOXYCYCLINE. [Suspect]
     Active Substance: DOXYCYCLINE
  2. VIRTUSSIN AC [Suspect]
     Active Substance: CODEINE PHOSPHATE\GUAIFENESIN
     Dosage: 2 TSP, ONCE
     Route: 048
     Dates: start: 20160209, end: 20160209

REACTIONS (6)
  - Seizure [Recovering/Resolving]
  - Dysstasia [Recovering/Resolving]
  - Sinus tachycardia [Recovered/Resolved]
  - Wheezing [Recovering/Resolving]
  - Vomiting [Recovered/Resolved]
  - Tremor [Recovering/Resolving]

NARRATIVE: CASE EVENT DATE: 20160209
